FAERS Safety Report 6570608-6 (Version None)
Quarter: 2010Q1

REPORT INFORMATION
  Report Type: 
  Country: None (occurrence: None)
  Receive Date: 20100204
  Receipt Date: 20100126
  Transmission Date: 20100710
  Serious: Yes (Other)
  Sender: FDA-Public Use
  Company Number: US-ASTRAZENECA-2009SE30583

PATIENT
  Sex: Male

DRUGS (10)
  1. SEROQUEL [Suspect]
     Route: 048
  2. DURAGESIC-100 [Concomitant]
  3. XANAX [Concomitant]
  4. PROPRANOLOL [Concomitant]
  5. FUROSEMIDE [Concomitant]
  6. HYDROCODONE [Concomitant]
  7. CARDURA [Concomitant]
  8. UROXATRAL [Concomitant]
  9. PAXIL [Concomitant]
  10. OXYBUTYNIN [Concomitant]

REACTIONS (7)
  - AGGRESSION [None]
  - CARDIAC FLUTTER [None]
  - CHEST PAIN [None]
  - DYSPNOEA [None]
  - MEMORY IMPAIRMENT [None]
  - MOOD SWINGS [None]
  - MYOCARDIAL INFARCTION [None]
